FAERS Safety Report 7438056-4 (Version None)
Quarter: 2011Q2

REPORT INFORMATION
  Report Type: 
  Country: None (occurrence: None)
  Receive Date: 20110421
  Receipt Date: 20110421
  Transmission Date: 20111010
  Serious: Yes (Life-Threatening)
  Sender: FDA-Public Use
  Company Number: None

PATIENT
  Age: 32 Year
  Sex: Male
  Weight: 72.5755 kg

DRUGS (3)
  1. AMBIEN [Suspect]
     Indication: INSOMNIA
     Dates: start: 20101219, end: 20101222
  2. PAXIL [Suspect]
     Indication: ANXIETY
     Dates: start: 20101219, end: 20101222
  3. XANAX [Suspect]
     Indication: ANXIETY
     Dates: start: 20101219, end: 20101222

REACTIONS (7)
  - CONDITION AGGRAVATED [None]
  - DELUSION [None]
  - THINKING ABNORMAL [None]
  - MAJOR DEPRESSION [None]
  - ANXIETY [None]
  - SUICIDAL IDEATION [None]
  - INTENTIONAL OVERDOSE [None]
